FAERS Safety Report 8473603-5 (Version None)
Quarter: 2012Q2

REPORT INFORMATION
  Report Type: 
  Country: None (occurrence: None)
  Receive Date: 20120628
  Receipt Date: 20110805
  Transmission Date: 20120825
  Serious: Yes (Other)
  Sender: FDA-Public Use
  Company Number: US-MYLANLABS-2011S1013904

PATIENT
  Age: 21 Year
  Sex: Female

DRUGS (8)
  1. CLONAZEPAM [Concomitant]
     Dosage: AND 0.5MG EVERY 12 HOURS AS NEEDED
  2. CLOZAPINE [Suspect]
     Route: 048
  3. RISPERIDONE [Concomitant]
     Dates: end: 20110627
  4. VITAMIN D [Concomitant]
  5. CLOZAPINE [Suspect]
     Indication: BIPOLAR DISORDER
     Route: 048
     Dates: start: 20110614
  6. LIDODERM [Concomitant]
  7. CLOZAPINE [Suspect]
     Route: 048
     Dates: start: 20110708, end: 20110712
  8. CLOZAPINE [Suspect]
     Route: 048
     Dates: end: 20110708

REACTIONS (3)
  - GRANULOCYTOPENIA [None]
  - SEDATION [None]
  - LEUKOPENIA [None]
